FAERS Safety Report 23190508 (Version 1)
Quarter: 2023Q4

REPORT INFORMATION
  Report Type: Spontaneous
  Country: US (occurrence: US)
  Receive Date: 20231116
  Receipt Date: 20231116
  Transmission Date: 20240110
  Serious: Yes (Hospitalization)
  Sender: FDA-Public Use
  Company Number: US-JNJFOC-20231113108

PATIENT
  Age: 51 Year
  Sex: Male

DRUGS (2)
  1. TREMFYA [Suspect]
     Active Substance: GUSELKUMAB
     Indication: Psoriasis
     Route: 058
     Dates: start: 20230806, end: 20230904
  2. OLMESARTAN [Concomitant]
     Active Substance: OLMESARTAN

REACTIONS (2)
  - Diverticulitis [Recovered/Resolved]
  - Bronchial hyperreactivity [Recovered/Resolved]

NARRATIVE: CASE EVENT DATE: 20231016
